FAERS Safety Report 9008984 (Version 1)
Quarter: 2013Q1

REPORT INFORMATION
  Report Type: Spontaneous
  Country: US (occurrence: US)
  Receive Date: 20130111
  Receipt Date: 20130111
  Transmission Date: 20140127
  Serious: Yes (Other)
  Sender: FDA-Public Use
  Company Number: US-BAYER-2013-003735

PATIENT
  Age: 49 Year
  Sex: Male

DRUGS (1)
  1. CIPRO [Suspect]
     Indication: BACTERIAL INFECTION
     Dosage: UNK UNK, BID
     Route: 048

REACTIONS (3)
  - Chromaturia [None]
  - Nasal oedema [Recovered/Resolved]
  - Oedema mouth [Recovered/Resolved]
